FAERS Safety Report 8444307 (Version 2)
Quarter: 2014Q4

REPORT INFORMATION
  Report Type: Spontaneous
  Country: DE (occurrence: DE)
  Receive Date: 20120307
  Receipt Date: 20141119
  Transmission Date: 20150529
  Serious: Yes (Hospitalization)
  Sender: FDA-Public Use
  Company Number: DE-RANBAXY-2012R1-53370

PATIENT
  Age: 30 Year
  Sex: Male

DRUGS (13)
  1. VANCOMYCIN [Suspect]
     Active Substance: VANCOMYCIN
     Indication: ENDOCARDITIS BACTERIAL
     Dosage: 0.5G,TID (DAYS 26-48)
     Route: 065
  2. GENTAMICIN. [Suspect]
     Active Substance: GENTAMICIN
     Indication: ENDOCARDITIS BACTERIAL
     Dosage: 240 MG, QD (DAYS 1-12)
     Route: 065
  3. CEFTRIAXONE. [Suspect]
     Active Substance: CEFTRIAXONE
     Indication: ANTIBIOTIC THERAPY
     Dosage: 2 G, BID (DAYS 37-48)
     Route: 065
  4. CEFUROXIME. [Suspect]
     Active Substance: CEFUROXIME
     Indication: ANTIBIOTIC THERAPY
     Dosage: UNK
     Route: 065
  5. RIFAMPICIN [Suspect]
     Active Substance: RIFAMPIN
     Indication: ANTIBIOTIC THERAPY
     Dosage: UNK
     Route: 065
  6. LINEZOLIDE [Suspect]
     Active Substance: LINEZOLID
     Indication: ANTIBIOTIC THERAPY
     Dosage: 600 MG, BID (DAYS 48-54)
     Route: 065
  7. CLINDAMYCIN [Suspect]
     Active Substance: CLINDAMYCIN\CLINDAMYCIN PHOSPHATE
     Indication: ANTIBIOTIC THERAPY
     Dosage: 600 MG, BID (DAYS 1-12)
     Route: 065
  8. BENZYLPENICILLIN [Suspect]
     Active Substance: PENICILLIN G
     Indication: ENDOCARDITIS BACTERIAL
     Dosage: 5X10^6, QID (DAYS 1-25)
     Route: 065
  9. GENTAMICIN. [Suspect]
     Active Substance: GENTAMICIN
     Indication: ENDOCARDITIS BACTERIAL
     Dosage: 80 MG, QID (DAYS 37-48)
     Route: 065
  10. TIGECYCLINE [Suspect]
     Active Substance: TIGECYCLINE
     Indication: ANTIBIOTIC THERAPY
     Dosage: 50 MG, BID (DAYS 48-54)
     Route: 065
  11. MOXIFLOXACIN [Suspect]
     Active Substance: MOXIFLOXACIN
     Indication: ANTIBIOTIC THERAPY
     Dosage: 400 MG, QD (DAYS 54-67)
     Route: 065
  12. DIFLUCAN [Suspect]
     Active Substance: FLUCONAZOLE
     Indication: ANTIBIOTIC THERAPY
     Dosage: 100 MG, BID (DAYS 58-67)
     Route: 065
  13. IMIPENEM [Suspect]
     Active Substance: IMIPENEM
     Indication: ANTIBIOTIC THERAPY
     Dosage: 500 MG, TID (DAYS 58-67)
     Route: 065

REACTIONS (1)
  - Drug reaction with eosinophilia and systemic symptoms [Recovering/Resolving]
